FAERS Safety Report 19067367 (Version 1)
Quarter: 2021Q1

REPORT INFORMATION
  Report Type: Spontaneous
  Country: US (occurrence: US)
  Receive Date: 20210329
  Receipt Date: 20210329
  Transmission Date: 20210420
  Serious: No
  Sender: FDA-Public Use
  Company Number: US-SA-2021SA098883

PATIENT
  Age: 52 Year
  Sex: Male

DRUGS (1)
  1. DUPIXENT [Suspect]
     Active Substance: DUPILUMAB
     Indication: DERMATITIS ATOPIC
     Dosage: UNK
     Route: 058
     Dates: start: 202012

REACTIONS (6)
  - Ocular hyperaemia [Unknown]
  - Skin exfoliation [Unknown]
  - Dermatitis atopic [Unknown]
  - Product dose omission issue [Unknown]
  - Unevaluable event [Unknown]
  - Drug effective for unapproved indication [Unknown]
